FAERS Safety Report 5173748-1 (Version None)
Quarter: 2006Q4

REPORT INFORMATION
  Report Type: 
  Country: None (occurrence: None)
  Receive Date: 20061206
  Receipt Date: 20061129
  Transmission Date: 20070319
  Serious: Yes (Hospitalization, Other)
  Sender: FDA-Public Use
  Company Number: 2006147922

PATIENT
  Sex: Female
  Weight: 54.4316 kg

DRUGS (5)
  1. NORVASC [Suspect]
     Indication: HYPERTENSION
     Dosage: 2.5 MG (2.5 MG, 1 IN 1 D)/FIVE YEARS PRIOR TO THIS REPORT
     Dates: end: 20061101
  2. POTASSIUM PILLS (POTASSIUM) [Suspect]
     Dosage: FIVE YEARS PRIOR TO THIS REPORT
     Dates: end: 20061101
  3. FUROSEMIDE [Concomitant]
  4. K-DUR (WATER PILL) (POTASSIUM CHLORIDE) [Concomitant]
  5. TOPROL-XL [Concomitant]

REACTIONS (3)
  - BLOOD POTASSIUM INCREASED [None]
  - CARDIAC FAILURE CONGESTIVE [None]
  - KNEE OPERATION [None]
